FAERS Safety Report 9333389 (Version 1)
Quarter: 2013Q2

REPORT INFORMATION
  Report Type: Spontaneous
  Country: US (occurrence: None)
  Receive Date: 20130604
  Receipt Date: 20130604
  Transmission Date: 20140414
  Serious: Yes (Other)
  Sender: FDA-Public Use
  Company Number: 2013-0874

PATIENT
  Age: 64 Year
  Sex: Female
  Weight: 71.67 kg

DRUGS (6)
  1. CARFILZOMIB (CARFLIZOMIB) [Suspect]
     Indication: PLASMA CELL MYELOMA
     Route: 042
     Dates: start: 20130218
  2. PANOBINOSTAT [Concomitant]
  3. HYDROCODONE-ACETAMINOPHEN [Concomitant]
  4. LOSARTAN-HYDROCHLOROTHIAZIDE [Concomitant]
  5. VITAMIN D (ERGOCALCIFEROL) (CAPSULE) (ERGOCALCIFEROL) [Concomitant]
  6. DEXAMETHASONE [Concomitant]

REACTIONS (2)
  - Cerebrovascular accident [None]
  - Headache [None]
